FAERS Safety Report 14345033 (Version 1)
Quarter: 2018Q1

REPORT INFORMATION
  Report Type: Report from Study
  Country: RU (occurrence: RU)
  Receive Date: 20180103
  Receipt Date: 20180103
  Transmission Date: 20180509
  Serious: Yes (Other)
  Sender: FDA-Public Use
  Company Number: RU-CIPLA LTD.-2017RU29837

PATIENT

DRUGS (2)
  1. BEMIPARIN [Suspect]
     Active Substance: BEMIPARIN
     Indication: DEEP VEIN THROMBOSIS
     Dosage: UNK, QD
     Route: 058
  2. WARFARIN [Suspect]
     Active Substance: WARFARIN
     Indication: DEEP VEIN THROMBOSIS
     Dosage: 5 MG/DAY, UNK
     Route: 048

REACTIONS (1)
  - Adverse event [Unknown]
